FAERS Safety Report 7002868-1 (Version None)
Quarter: 2010Q3

REPORT INFORMATION
  Report Type: 
  Country: None (occurrence: None)
  Receive Date: 20100920
  Receipt Date: 20100910
  Transmission Date: 20110219
  Serious: Yes (Other)
  Sender: FDA-Public Use
  Company Number: CA-PURDUE-CAN-2010-0001515

PATIENT
  Age: 67 Year
  Sex: Male

DRUGS (7)
  1. HYDROMORPHONE HCL [Suspect]
     Indication: PAIN
     Dosage: 30 MG, BID
     Route: 048
  2. HYDROMORPHONE HCL [Suspect]
     Dosage: 24 MG, TID
     Route: 048
     Dates: start: 20100801
  3. GLYBURIDE [Concomitant]
     Indication: DIABETES MELLITUS
     Dosage: 5 MG, BID
     Route: 048
  4. LISINOPRIL [Concomitant]
     Indication: HYPERTENSION
     Dosage: UNK
     Route: 048
  5. DICLOFENAC [Concomitant]
     Indication: PAIN
     Dosage: 100 MG, PRN
     Route: 054
     Dates: start: 20100701
  6. PERCOCET [Concomitant]
     Indication: PAIN
     Dosage: UNK
     Route: 048
  7. CARBAMAZEPINE [Concomitant]
     Indication: NERVE INJURY
     Dosage: UNK
     Route: 048

REACTIONS (1)
  - BLOOD GLUCOSE INCREASED [None]
